FAERS Safety Report 10218724 (Version 1)
Quarter: 2014Q2

REPORT INFORMATION
  Report Type: Spontaneous
  Country: US (occurrence: None)
  Receive Date: 20140604
  Receipt Date: 20140604
  Transmission Date: 20141212
  Serious: Yes (Other)
  Sender: FDA-Public Use
  Company Number: None

PATIENT
  Age: 59 Year
  Sex: Female
  Weight: 61.69 kg

DRUGS (6)
  1. BONIVA [Suspect]
     Indication: OSTEOPOROSIS
     Route: 048
     Dates: start: 2008, end: 2014
  2. AMPICILLIN [Concomitant]
  3. ACETAMINOPHEN [Concomitant]
  4. PREMARIN [Concomitant]
  5. FLUCONAZOLE [Concomitant]
  6. PROBIOTICS [Concomitant]

REACTIONS (3)
  - Osteonecrosis [None]
  - Jaw disorder [None]
  - Localised infection [None]
